FAERS Safety Report 21698079 (Version 1)
Quarter: 2022Q4

REPORT INFORMATION
  Report Type: Spontaneous
  Country: US (occurrence: US)
  Receive Date: 20221208
  Receipt Date: 20221208
  Transmission Date: 20230112
  Serious: No
  Sender: FDA-Public Use
  Company Number: US-EyePoint Pharmaceuticals, Inc.-US-EYP-22-00053

PATIENT
  Age: 68 Year
  Sex: Male

DRUGS (4)
  1. YUTIQ [Suspect]
     Active Substance: FLUOCINOLONE ACETONIDE
     Indication: Chorioretinitis
     Dosage: MEDICATION RELEASED IN SUBCONJUNCTIVAL SPACE
     Route: 031
     Dates: start: 20210311, end: 20210311
  2. ATORVASTATIN [Concomitant]
     Active Substance: ATORVASTATIN
     Indication: High density lipoprotein
     Route: 048
  3. LANTUS [Concomitant]
     Active Substance: INSULIN GLARGINE
     Indication: Diabetes mellitus
     Dosage: 300 UNITS/ML
  4. METFORMIN [Concomitant]
     Active Substance: METFORMIN HYDROCHLORIDE
     Indication: Diabetes mellitus
     Route: 048

REACTIONS (3)
  - Off label use [Unknown]
  - Device dislocation [Unknown]
  - No adverse event [Unknown]

NARRATIVE: CASE EVENT DATE: 20210311
